FAERS Safety Report 6334457-6 (Version None)
Quarter: 2009Q3

REPORT INFORMATION
  Report Type: 
  Country: None (occurrence: None)
  Receive Date: 20090831
  Receipt Date: 20090827
  Transmission Date: 20100115
  Serious: Yes (Hospitalization)
  Sender: FDA-Public Use
  Company Number: US-B.I. PHARMACEUTICALS,INC./RIDGEFIELD-2009-BP-10097BP

PATIENT
  Sex: Female

DRUGS (5)
  1. SPIRIVA [Suspect]
     Indication: CHRONIC OBSTRUCTIVE PULMONARY DISEASE
     Dosage: 18 MCG
     Route: 055
     Dates: start: 20070801
  2. BYSTOLIC [Concomitant]
     Indication: HYPERTENSION
  3. ZESTORIC [Concomitant]
     Indication: HYPERTENSION
  4. MUCINEX [Concomitant]
     Indication: CHRONIC OBSTRUCTIVE PULMONARY DISEASE
  5. PROVENTIL-HFA [Concomitant]

REACTIONS (5)
  - ANAEMIA [None]
  - BLOOD CHOLESTEROL INCREASED [None]
  - GASTRITIS [None]
  - PNEUMONIA [None]
  - PULMONARY FUNCTION TEST DECREASED [None]
